FAERS Safety Report 23156337 (Version 4)
Quarter: 2023Q4

REPORT INFORMATION
  Report Type: Report from Study
  Country: CA (occurrence: CA)
  Receive Date: 20231107
  Receipt Date: 20231128
  Transmission Date: 20240109
  Serious: Yes (Hospitalization, Other)
  Sender: FDA-Public Use
  Company Number: CA-ABBVIE-5479189

PATIENT
  Sex: Female

DRUGS (2)
  1. HUMIRA [Suspect]
     Active Substance: ADALIMUMAB
     Indication: Crohn^s disease
     Dosage: FORM STRENGTH: 40MG
     Route: 058
     Dates: start: 20230707, end: 20231013
  2. HUMIRA [Suspect]
     Active Substance: ADALIMUMAB
     Indication: Crohn^s disease

REACTIONS (8)
  - Bartholin^s cyst [Unknown]
  - Illness [Recovering/Resolving]
  - Abscess [Unknown]
  - Pain [Unknown]
  - Pilonidal disease [Unknown]
  - Influenza [Unknown]
  - Bowel movement irregularity [Recovered/Resolved]
  - Infected cyst [Recovering/Resolving]

NARRATIVE: CASE EVENT DATE: 20230101
